FAERS Safety Report 13695441 (Version 2)
Quarter: 2017Q3

REPORT INFORMATION
  Report Type: Report from Study
  Country: None (occurrence: US)
  Receive Date: 20170627
  Receipt Date: 20170921
  Transmission Date: 20171127
  Serious: Yes (Other)
  Sender: FDA-Public Use
  Company Number: US-ABBVIE-17P-163-2017097-00

PATIENT
  Age: 63 Year
  Sex: Female

DRUGS (3)
  1. RIBAVIRIN. [Suspect]
     Active Substance: RIBAVIRIN
     Route: 048
     Dates: start: 201706
  2. VIEKIRA XR [Suspect]
     Active Substance: DASABUVIR SODIUM MONOHYDRATE\OMBITASVIR HEMINONAHYDRATE\PARITAPREVIR DIHYDRATE\RITONAVIR
     Indication: HEPATITIS C
     Route: 048
     Dates: start: 20170428
  3. RIBAVIRIN. [Suspect]
     Active Substance: RIBAVIRIN
     Indication: HEPATITIS C
     Route: 048
     Dates: start: 20170428, end: 201706

REACTIONS (6)
  - Palpitations [Recovered/Resolved]
  - Herpes zoster [Recovering/Resolving]
  - Anxiety [Recovered/Resolved]
  - Tachyphrenia [Recovering/Resolving]
  - Palpitations [Recovering/Resolving]
  - Anaemia [Recovered/Resolved]

NARRATIVE: CASE EVENT DATE: 20170428
